FAERS Safety Report 17041520 (Version 1)
Quarter: 2019Q4

REPORT INFORMATION
  Report Type: Spontaneous
  Country: GB (occurrence: GB)
  Receive Date: 20191118
  Receipt Date: 20191118
  Transmission Date: 20200122
  Serious: Yes (Other)
  Sender: FDA-Public Use
  Company Number: GB-TEVA-2019-GB-1137886

PATIENT
  Age: 54 Year
  Sex: Female
  Weight: 94 kg

DRUGS (9)
  1. NICOTINE. [Concomitant]
     Active Substance: NICOTINE
  2. TINZAPARIN [Concomitant]
     Active Substance: TINZAPARIN
  3. LANSOPRAZOLE. [Concomitant]
     Active Substance: LANSOPRAZOLE
  4. MIDAZOLAM HYDROCHLORIDE. [Concomitant]
     Active Substance: MIDAZOLAM HYDROCHLORIDE
  5. OCTREOTIDE. [Suspect]
     Active Substance: OCTREOTIDE
     Indication: VOMITING
     Dosage: 300 MICROGRAM
     Route: 058
     Dates: start: 20180501, end: 20180502
  6. LEVOMEPROMAZINE [Concomitant]
     Active Substance: LEVOMEPROMAZINE
  7. DOCUSATE [Concomitant]
     Active Substance: DOCUSATE
  8. HALOPERIDOL. [Concomitant]
     Active Substance: HALOPERIDOL
  9. ACICLOVIR [Concomitant]
     Active Substance: ACYCLOVIR

REACTIONS (3)
  - Oropharyngeal pain [Recovered/Resolved]
  - Erythema [Recovered/Resolved]
  - Pruritus [Recovered/Resolved]

NARRATIVE: CASE EVENT DATE: 20180501
